FAERS Safety Report 4769805-1 (Version None)
Quarter: 2005Q3

REPORT INFORMATION
  Report Type: 
  Country: None (occurrence: None)
  Receive Date: 20050915
  Receipt Date: 20050909
  Transmission Date: 20060218
  Serious: Yes (Life-Threatening, Other)
  Sender: FDA-Public Use
  Company Number: PHBS2005RU13293

PATIENT
  Age: 50 Year
  Sex: Female

DRUGS (5)
  1. FORADIL [Suspect]
     Indication: ASTHMA
     Dosage: 24 UG, UNK
  2. THEOPHYLLINE [Concomitant]
  3. EUPHYLLIN [Concomitant]
  4. CORTICOSTEROIDS [Concomitant]
     Route: 048
  5. BEROTEC [Concomitant]

REACTIONS (2)
  - CARDIAC ARREST [None]
  - RESUSCITATION [None]
